FAERS Safety Report 23181024 (Version 1)
Quarter: 2023Q4

REPORT INFORMATION
  Report Type: Spontaneous
  Country: RU (occurrence: RU)
  Receive Date: 20231114
  Receipt Date: 20231114
  Transmission Date: 20240110
  Serious: Yes (Hospitalization, Other)
  Sender: FDA-Public Use
  Company Number: RU-ROCHE-3453001

PATIENT
  Sex: Male
  Weight: 80 kg

DRUGS (11)
  1. CAPECITABINE [Suspect]
     Active Substance: CAPECITABINE
     Indication: Adenocarcinoma gastric
     Dosage: ON DAYS 1-14 ALL ON A 21 DAY CYCLE
     Route: 048
     Dates: start: 20151019
  2. CAPECITABINE [Suspect]
     Active Substance: CAPECITABINE
     Indication: Adenocarcinoma gastric
     Route: 048
     Dates: start: 20160119
  3. CAPECITABINE [Suspect]
     Active Substance: CAPECITABINE
     Indication: Adenocarcinoma gastric
     Route: 048
     Dates: start: 20160317, end: 20160406
  4. CISPLATIN [Suspect]
     Active Substance: CISPLATIN
     Indication: Adenocarcinoma gastric
     Dosage: ON DAY 1
     Route: 042
     Dates: start: 20151019
  5. CISPLATIN [Suspect]
     Active Substance: CISPLATIN
     Indication: Adenocarcinoma gastric
     Route: 042
     Dates: start: 20160119
  6. RAMUCIRUMAB [Suspect]
     Active Substance: RAMUCIRUMAB
     Indication: Adenocarcinoma gastric
     Route: 042
     Dates: start: 20151019
  7. RAMUCIRUMAB [Suspect]
     Active Substance: RAMUCIRUMAB
     Indication: Adenocarcinoma gastric
     Route: 042
     Dates: start: 20160125
  8. RAMUCIRUMAB [Suspect]
     Active Substance: RAMUCIRUMAB
     Indication: Adenocarcinoma gastric
     Route: 042
     Dates: start: 20160225
  9. METFORMIN HYDROCHLORIDE [Concomitant]
     Active Substance: METFORMIN HYDROCHLORIDE
     Indication: Glucose tolerance impaired
  10. ADEMETIONINE [Concomitant]
     Active Substance: ADEMETIONINE
  11. NIKETHAMIDE [Concomitant]
     Active Substance: NIKETHAMIDE

REACTIONS (4)
  - Proteinuria [Recovered/Resolved]
  - Anaemia [Recovered/Resolved]
  - Supraventricular extrasystoles [Recovered/Resolved]
  - Neutropenia [Unknown]
